FAERS Safety Report 20731771 (Version 4)
Quarter: 2023Q4

REPORT INFORMATION
  Report Type: Spontaneous
  Country: US (occurrence: US)
  Receive Date: 20220420
  Receipt Date: 20231115
  Transmission Date: 20240110
  Serious: No
  Sender: FDA-Public Use
  Company Number: US-PFIZER INC-2020343436

PATIENT
  Age: 65 Year
  Sex: Female

DRUGS (2)
  1. BOSULIF [Suspect]
     Active Substance: BOSUTINIB MONOHYDRATE
     Indication: Chronic myeloid leukaemia
     Dosage: 200 MG, ALTERNATE DAY ( TAKE 1 TABLET ALTERNATING WITH 2 TABLETS BY MOUTH ONCE DAILY)
     Route: 048
     Dates: start: 20200630
  2. BOSULIF [Suspect]
     Active Substance: BOSUTINIB MONOHYDRATE
     Dosage: 100 MG, ALTERNATE DAY ( TAKE 1 TABLET ALTERNATING WITH 2 TABLETS BY MOUTH ONCE DAILY)
     Route: 048

REACTIONS (3)
  - Hypoacusis [Unknown]
  - Off label use [Unknown]
  - Product use issue [Unknown]
